FAERS Safety Report 5231263-0 (Version None)
Quarter: 2007Q1

REPORT INFORMATION
  Report Type: 
  Country: None (occurrence: None)
  Receive Date: 20070205
  Receipt Date: 20070205
  Transmission Date: 20070707
  Serious: Yes (Other)
  Sender: FDA-Public Use
  Company Number: None

PATIENT
  Age: 66 Year
  Sex: Male
  Weight: 108.4097 kg

DRUGS (1)
  1. FLOMAX [Suspect]
     Dosage: 0.4 MG DAILY   ONE PILL IN 2003

REACTIONS (2)
  - CATARACT [None]
  - MIOSIS [None]
